FAERS Safety Report 5692765-6 (Version None)
Quarter: 2008Q2

REPORT INFORMATION
  Report Type: 
  Country: None (occurrence: None)
  Receive Date: 20080401
  Receipt Date: 20080317
  Transmission Date: 20081010
  Serious: Yes (Death, Hospitalization, Other)
  Sender: FDA-Public Use
  Company Number: 2008S1004407

PATIENT
  Age: 72 Year
  Sex: Female

DRUGS (3)
  1. SOTALOL HCL [Suspect]
     Indication: ATRIAL FIBRILLATION
     Dosage: 320 MG; DAILY
  2. DILTIAZEM [Suspect]
     Indication: ATRIAL FIBRILLATION
     Dosage: 200 MG; DAILY
  3. ACENOCOUMAROL [Concomitant]

REACTIONS (7)
  - BRAIN DEATH [None]
  - CEREBRAL ISCHAEMIA [None]
  - HYPOKALAEMIA [None]
  - LOSS OF CONSCIOUSNESS [None]
  - SUDDEN DEATH [None]
  - TORSADE DE POINTES [None]
  - VENTRICULAR FIBRILLATION [None]
